FAERS Safety Report 5147166-6 (Version None)
Quarter: 2006Q4

REPORT INFORMATION
  Report Type: 
  Country: None (occurrence: None)
  Receive Date: 20061109
  Receipt Date: 20061023
  Transmission Date: 20070319
  Serious: Yes (Life-Threatening, Hospitalization)
  Sender: FDA-Public Use
  Company Number: FR-BOEHRINGER INGELHEIM GMBH, GERMANY-2006-FF-01143FF

PATIENT
  Sex: Male
  Weight: 180 kg

DRUGS (6)
  1. SPIRIVA [Suspect]
     Indication: CHRONIC OBSTRUCTIVE PULMONARY DISEASE
     Route: 055
     Dates: start: 20060613
  2. AUGMENTIN '125' [Suspect]
     Route: 048
     Dates: start: 20060609, end: 20060615
  3. FOZITEC [Concomitant]
     Route: 048
     Dates: start: 20040207
  4. ALLOPURINOL [Concomitant]
     Route: 048
     Dates: start: 20040207
  5. NAFTIDROFURYL [Concomitant]
     Route: 048
     Dates: start: 20040207
  6. FENOFIBRATE [Concomitant]
     Route: 048
     Dates: start: 20040207

REACTIONS (3)
  - ANAPHYLACTIC SHOCK [None]
  - ANGIONEUROTIC OEDEMA [None]
  - RASH [None]
